FAERS Safety Report 24180581 (Version 2)
Quarter: 2024Q3

REPORT INFORMATION
  Report Type: Spontaneous
  Country: BR (occurrence: None)
  Receive Date: 20240806
  Receipt Date: 20240816
  Transmission Date: 20241017
  Serious: Yes (Life-Threatening, Other)
  Sender: ASTRAZENECA
  Company Number: 2024A177881

PATIENT
  Age: 37 Year
  Sex: Female

DRUGS (2)
  1. BUDESONIDE\FORMOTEROL FUMARATE DIHYDRATE [Suspect]
     Active Substance: BUDESONIDE\FORMOTEROL FUMARATE DIHYDRATE
     Indication: Asthma
     Dosage: USE 2 JETS WHEN ASTHMA IS VERY ATTACKED TWO TIMES A DAY
     Route: 055
  2. BUDESONIDE\FORMOTEROL FUMARATE DIHYDRATE [Suspect]
     Active Substance: BUDESONIDE\FORMOTEROL FUMARATE DIHYDRATE
     Indication: Asthma
     Dosage: USE 1 SPRAY WHEN ASTHMA IS MILD EVERY 12 HOURS
     Route: 055
     Dates: start: 2023

REACTIONS (6)
  - Asthmatic crisis [Unknown]
  - Wrong technique in device usage process [Unknown]
  - Intentional product misuse [Not Recovered/Not Resolved]
  - Device delivery system issue [Unknown]
  - Device use issue [Unknown]
  - Device malfunction [Unknown]
